FAERS Safety Report 24908492 (Version 2)
Quarter: 2025Q1

REPORT INFORMATION
  Report Type: Report from Study
  Country: US (occurrence: US)
  Receive Date: 20250131
  Receipt Date: 20250305
  Transmission Date: 20250408
  Serious: Yes (Other)
  Sender: JOHNSON AND JOHNSON
  Company Number: US-JNJFOC-20250158815

PATIENT
  Sex: Male

DRUGS (11)
  1. TALQUETAMAB [Suspect]
     Active Substance: TALQUETAMAB
     Indication: Plasma cell myeloma
     Dosage: FOR 8 WEEKS
     Route: 065
     Dates: start: 20241108, end: 20250108
  2. LOSARTAN [Concomitant]
     Active Substance: LOSARTAN
  3. CRESTOR [Concomitant]
     Active Substance: ROSUVASTATIN CALCIUM
  4. METFORMIN [Concomitant]
     Active Substance: METFORMIN HYDROCHLORIDE
  5. ALUMINUM HYDROXIDE\MAGNESIUM CARBONATE [Concomitant]
     Active Substance: ALUMINUM HYDROXIDE\MAGNESIUM CARBONATE
  6. ACYCLOVIR [Concomitant]
     Active Substance: ACYCLOVIR
  7. SULFAMETHAZINE [Concomitant]
     Active Substance: SULFAMETHAZINE
  8. PANTOPRAZOLE [Concomitant]
     Active Substance: PANTOPRAZOLE
  9. ELIQUIS [Concomitant]
     Active Substance: APIXABAN
  10. PROBIOTICS NOS [Concomitant]
     Active Substance: PROBIOTICS NOS
  11. ZYRTEC [Concomitant]
     Active Substance: CETIRIZINE HYDROCHLORIDE

REACTIONS (4)
  - Plasma cell myeloma [Unknown]
  - Drug ineffective [Unknown]
  - Taste disorder [Not Recovered/Not Resolved]
  - Weight decreased [Unknown]
